FAERS Safety Report 7381364-6 (Version None)
Quarter: 2011Q1

REPORT INFORMATION
  Report Type: 
  Country: None (occurrence: None)
  Receive Date: 20110321
  Receipt Date: 20110308
  Transmission Date: 20110831
  Serious: Yes (Life-Threatening)
  Sender: FDA-Public Use
  Company Number: 1000019262

PATIENT
  Age: 78 Year
  Sex: Female

DRUGS (7)
  1. MEMANTINE [Suspect]
     Dosage: 10 MG (10 MG 1 IN 1 D), ORAL
     Route: 048
     Dates: start: 20100301, end: 20101125
  2. MEMANTINE [Suspect]
     Dosage: 10 MG (10 MG, 1 IN 1 D), ORAL
     Route: 048
  3. PERINDOPRIL ERBUMINE [Concomitant]
  4. ZOLPIDEM TARTRATE [Concomitant]
  5. ARICEPT [Suspect]
     Dosage: 10 MG (20 MG, 1 IN 1 D), ORAL
     Route: 048
     Dates: start: 20100301, end: 20101125
  6. ARICEPT [Suspect]
     Dosage: 10 MG (10 MG, 1 IN 1 D), ORAL
     Route: 048
  7. JANUVIA [Suspect]
     Dosage: 100 MG (100 MG, 1 IN 1 D), ORAL
     Route: 048

REACTIONS (4)
  - SINUS ARREST [None]
  - BRADYCARDIA [None]
  - SYNCOPE [None]
  - SINOATRIAL BLOCK [None]
